FAERS Safety Report 6089084-5 (Version None)
Quarter: 2009Q1

REPORT INFORMATION
  Report Type: 
  Country: None (occurrence: None)
  Receive Date: 20090224
  Receipt Date: 20090219
  Transmission Date: 20090719
  Serious: No
  Sender: FDA-Public Use
  Company Number: US-JNJFOC-20090205360

PATIENT
  Sex: Female
  Weight: 72.12 kg

DRUGS (2)
  1. DURAGESIC-100 [Suspect]
     Indication: SCIATICA
     Route: 062
  2. OXYCODON [Concomitant]
     Indication: PAIN
     Dosage: AS NEEDED
     Route: 048

REACTIONS (4)
  - DIZZINESS [None]
  - INAPPROPRIATE SCHEDULE OF DRUG ADMINISTRATION [None]
  - NAUSEA [None]
  - SOMNOLENCE [None]
